FAERS Safety Report 25977817 (Version 1)
Quarter: 2025Q4

REPORT INFORMATION
  Report Type: Report from Study
  Country: CA (occurrence: CA)
  Receive Date: 20251030
  Receipt Date: 20251030
  Transmission Date: 20260117
  Serious: Yes (Disabling)
  Sender: ABBVIE
  Company Number: CA-ABBVIE-6519604

PATIENT
  Age: 63 Year
  Sex: Male

DRUGS (1)
  1. RINVOQ [Suspect]
     Active Substance: UPADACITINIB
     Indication: Rheumatoid arthritis
     Dosage: FORM STRENGTH - 15 MG
     Route: 048

REACTIONS (2)
  - Back injury [Unknown]
  - Nerve compression [Recovered/Resolved]

NARRATIVE: CASE EVENT DATE: 20251023
